FAERS Safety Report 11177592 (Version 1)
Quarter: 2015Q2

REPORT INFORMATION
  Report Type: Report from Study
  Country: US (occurrence: US)
  Receive Date: 20150610
  Receipt Date: 20150610
  Transmission Date: 20150821
  Serious: Yes (Hospitalization)
  Sender: FDA-Public Use
  Company Number: US-EISAI MEDICAL RESEARCH-EC-2015-006913

PATIENT
  Age: 73 Year
  Sex: Female
  Weight: 72 kg

DRUGS (10)
  1. PAROXETINE HYDROCHLORIDE. [Concomitant]
     Active Substance: PAROXETINE HYDROCHLORIDE
  2. CALCIUM 500 PLUS VITAMIN D [Concomitant]
  3. AMBIEN [Concomitant]
     Active Substance: ZOLPIDEM TARTRATE
  4. SYNTHROID [Concomitant]
     Active Substance: LEVOTHYROXINE SODIUM
  5. LENVIMA [Suspect]
     Active Substance: LENVATINIB
     Indication: THYROID CANCER
     Route: 048
     Dates: start: 201505, end: 2015
  6. AMLODIPINE BESYLATE-BENAZEPRIL [Concomitant]
  7. CALCITRIOL. [Concomitant]
     Active Substance: CALCITRIOL
  8. CENTRUM SLIVER WOMEN [Concomitant]
  9. ACIPHEX [Concomitant]
     Active Substance: RABEPRAZOLE SODIUM
  10. LIVALO [Concomitant]
     Active Substance: PITAVASTATIN CALCIUM

REACTIONS (4)
  - Abdominal discomfort [Unknown]
  - Nausea [Unknown]
  - Blood pressure increased [Unknown]
  - Fatigue [Unknown]

NARRATIVE: CASE EVENT DATE: 201505
